FAERS Safety Report 13482854 (Version 5)
Quarter: 2017Q4

REPORT INFORMATION
  Report Type: Report from Study
  Country: None (occurrence: US)
  Receive Date: 20170426
  Receipt Date: 20171109
  Transmission Date: 20180320
  Serious: Yes (Hospitalization, Other)
  Sender: FDA-Public Use
  Company Number: US-ABBVIE-17K-163-1953392-00

PATIENT
  Age: 76 Year
  Sex: Male

DRUGS (11)
  1. HUMIRA [Suspect]
     Active Substance: ADALIMUMAB
     Route: 058
     Dates: start: 201608, end: 201701
  2. METOPROLOL. [Concomitant]
     Active Substance: METOPROLOL
     Indication: HYPERTENSION
  3. ATORVASTATIN [Concomitant]
     Active Substance: ATORVASTATIN
     Indication: BLOOD CHOLESTEROL INCREASED
  4. HUMIRA [Suspect]
     Active Substance: ADALIMUMAB
     Route: 058
     Dates: start: 201702
  5. KEPPRA [Suspect]
     Active Substance: LEVETIRACETAM
     Dosage: DOSE DECREASED
     Route: 048
  6. ASPIRIN. [Concomitant]
     Active Substance: ASPIRIN
     Indication: ANTICOAGULANT THERAPY
  7. METHOTREXATE. [Concomitant]
     Active Substance: METHOTREXATE
     Indication: RHEUMATOID ARTHRITIS
  8. HUMIRA [Suspect]
     Active Substance: ADALIMUMAB
     Indication: RHEUMATOID ARTHRITIS
     Route: 058
     Dates: start: 2015, end: 201606
  9. MELATONIN [Concomitant]
     Active Substance: MELATONIN
     Indication: SLEEP DISORDER THERAPY
  10. FOLIC ACID. [Concomitant]
     Active Substance: FOLIC ACID
     Indication: RHEUMATOID ARTHRITIS
  11. KEPPRA [Suspect]
     Active Substance: LEVETIRACETAM
     Indication: SEIZURE
     Route: 048

REACTIONS (20)
  - Amnesia [Recovering/Resolving]
  - Arthralgia [Not Recovered/Not Resolved]
  - Gait disturbance [Recovering/Resolving]
  - Speech disorder [Recovered/Resolved]
  - Skin induration [Recovered/Resolved]
  - Musculoskeletal pain [Unknown]
  - Seizure [Recovered/Resolved]
  - Hydrocephalus [Recovered/Resolved]
  - Staphylococcal infection [Recovered/Resolved]
  - Dehydration [Recovered/Resolved]
  - Urosepsis [Recovering/Resolving]
  - Hepatic enzyme increased [Unknown]
  - Urinary incontinence [Recovering/Resolving]
  - Depression [Not Recovered/Not Resolved]
  - Arthralgia [Unknown]
  - Staphylococcal infection [Unknown]
  - Bacteraemia [Unknown]
  - Pain [Unknown]
  - Clostridium difficile infection [Unknown]
  - Erythema [Recovered/Resolved]

NARRATIVE: CASE EVENT DATE: 201601
